FAERS Safety Report 5002185-5 (Version None)
Quarter: 2006Q2

REPORT INFORMATION
  Report Type: 
  Country: None (occurrence: None)
  Receive Date: 20060510
  Receipt Date: 20060502
  Transmission Date: 20061013
  Serious: Yes (Hospitalization)
  Sender: FDA-Public Use
  Company Number: 2005BI021356

PATIENT
  Age: 52 Year
  Sex: Male

DRUGS (1)
  1. AVONEX [Suspect]
     Indication: MULTIPLE SCLEROSIS
     Dosage: 30 UG;QW;IM
     Route: 030
     Dates: start: 20040330

REACTIONS (5)
  - COORDINATION ABNORMAL [None]
  - DISEASE PROGRESSION [None]
  - MENTAL DISORDER [None]
  - MULTIPLE SCLEROSIS [None]
  - PAIN [None]
